FAERS Safety Report 23357297 (Version 1)
Quarter: 2024Q1

REPORT INFORMATION
  Report Type: Spontaneous
  Country: SK (occurrence: SK)
  Receive Date: 20240102
  Receipt Date: 20240102
  Transmission Date: 20240409
  Serious: Yes (Other)
  Sender: FDA-Public Use
  Company Number: SK-SERVIER-S23005762

PATIENT
  Age: 57 Year
  Sex: Female

DRUGS (12)
  1. ONIVYDE [Suspect]
     Active Substance: IRINOTECAN HYDROCHLORIDE
     Indication: Adenocarcinoma pancreas
     Dosage: 16 CYCLES
     Route: 042
     Dates: start: 202201
  2. FLUOROURACIL [Suspect]
     Active Substance: FLUOROURACIL
     Indication: Pancreatic carcinoma stage II
     Dosage: UNK (16 CYCLES) (UNKNOWN DATE IN JAN-2022 T
     Route: 065
     Dates: start: 202201
  3. FLUOROURACIL [Suspect]
     Active Substance: FLUOROURACIL
     Dosage: UNK (12 CYCLES)
     Route: 065
  4. FLUOROURACIL [Suspect]
     Active Substance: FLUOROURACIL
     Dosage: UNK, 2 CYCLES OF ADJUVANT MFOLFIRINOX
     Route: 065
  5. LEUCOVORIN [Suspect]
     Active Substance: LEUCOVORIN\LEUCOVORIN CALCIUM
     Indication: Pancreatic carcinoma stage II
     Dosage: UNK (16 CYCLES) (UNKNOWN DATE IN JAN-2022 TO NOV-2022)
     Route: 065
     Dates: start: 202201, end: 202211
  6. LEUCOVORIN [Suspect]
     Active Substance: LEUCOVORIN\LEUCOVORIN CALCIUM
     Dosage: UNK (12 CYCLES)
     Route: 065
  7. LEUCOVORIN [Suspect]
     Active Substance: LEUCOVORIN\LEUCOVORIN CALCIUM
     Indication: Pancreatic carcinoma
     Dosage: 2 CYCLES OF ADJUVANT MFOLFIRINOX
     Route: 065
  8. OXALIPLATIN [Suspect]
     Active Substance: OXALIPLATIN
     Indication: Pancreatic carcinoma stage II
     Dosage: 12 CYCLES OF ADJUVANT MFOLFIRINOX
     Route: 042
  9. IRINOTECAN [Suspect]
     Active Substance: IRINOTECAN
     Indication: Pancreatic carcinoma
     Dosage: UNK, 2 CYCLES OF ADJUVANT MFOLFIRINOX
     Route: 065
  10. IRINOTECAN [Suspect]
     Active Substance: IRINOTECAN
     Dosage: UNK (12 CYCLES)
     Route: 065
  11. PACLITAXEL [Suspect]
     Active Substance: PACLITAXEL
     Indication: Pancreatic carcinoma
     Dosage: 6 CYCLES, IN COMBINATION WITH GEMCITABIN
     Route: 042
     Dates: start: 202102, end: 2021
  12. GEMCITABINE [Suspect]
     Active Substance: GEMCITABINE
     Indication: Pancreatic carcinoma
     Dosage: GEMCITABINE + NAB-PACLITAXE
     Route: 065
     Dates: start: 202102, end: 202112

REACTIONS (4)
  - Neuropathy peripheral [Unknown]
  - Neutropenia [Recovered/Resolved]
  - Neurotoxicity [Unknown]
  - Disease progression [Unknown]

NARRATIVE: CASE EVENT DATE: 20210101
